FAERS Safety Report 10761730 (Version 1)
Quarter: 2015Q1

REPORT INFORMATION
  Report Type: Spontaneous
  Country: US (occurrence: None)
  Receive Date: 20150128
  Receipt Date: 20150128
  Transmission Date: 20150721
  Serious: Yes (Other)
  Sender: FDA-Public Use
  Company Number: 1464642

PATIENT
  Age: 89 Year
  Sex: Male

DRUGS (5)
  1. RAPAFLO [Concomitant]
     Active Substance: SILODOSIN
  2. IMBRUVICA [Concomitant]
     Active Substance: IBRUTINIB
  3. LEVOTHYROXIN (LEVOTHYROXINE) [Concomitant]
  4. ALLOPURINOL. [Concomitant]
     Active Substance: ALLOPURINOL
  5. RITUXAN [Suspect]
     Active Substance: RITUXIMAB
     Indication: PRODUCT USED FOR UNKNOWN INDICATION

REACTIONS (2)
  - Dyspnoea [None]
  - Chills [None]
